FAERS Safety Report 8549795-6 (Version None)
Quarter: 2012Q3

REPORT INFORMATION
  Report Type: 
  Country: None (occurrence: None)
  Receive Date: 20120730
  Receipt Date: 20120724
  Transmission Date: 20120928
  Serious: Yes (Death, Other)
  Sender: FDA-Public Use
  Company Number: GB-009507513-2012SP023814

PATIENT

DRUGS (1)
  1. IMPLANON [Suspect]
     Dosage: 1 DF, UNKNOWN
     Route: 065

REACTIONS (1)
  - INFERTILITY FEMALE [None]
